FAERS Safety Report 6416714-8 (Version None)
Quarter: 2009Q4

REPORT INFORMATION
  Report Type: 
  Country: None (occurrence: None)
  Receive Date: 20091027
  Receipt Date: 20091015
  Transmission Date: 20100525
  Serious: Yes (Hospitalization)
  Sender: FDA-Public Use
  Company Number: CA-ELI_LILLY_AND_COMPANY-CA200910004042

PATIENT
  Age: 20 Year
  Sex: Female

DRUGS (2)
  1. CYMBALTA [Suspect]
     Indication: ARTHRITIS
     Dosage: 60 MG, UNK
  2. ASPIRIN [Concomitant]
     Indication: PAIN

REACTIONS (4)
  - HOSPITALISATION [None]
  - HYPOMANIA [None]
  - INSOMNIA [None]
  - OFF LABEL USE [None]
